FAERS Safety Report 8207871-1 (Version None)
Quarter: 2012Q1

REPORT INFORMATION
  Report Type: 
  Country: None (occurrence: None)
  Receive Date: 20120314
  Receipt Date: 20120305
  Transmission Date: 20120608
  Serious: Yes (Disabling, Other)
  Sender: FDA-Public Use
  Company Number: MX-SANOFI-AVENTIS-2012SA015079

PATIENT
  Age: 84 Year
  Sex: Female
  Weight: 90 kg

DRUGS (3)
  1. INSULIN GLARGINE [Suspect]
     Indication: TYPE 2 DIABETES MELLITUS
     Dosage: 5 TO 15 IU 24 HOUR (DOSE DEPENDING ON THE GLUCOSE LEVELS)
     Route: 058
     Dates: start: 20070101
  2. ANTIHYPERTENSIVES [Concomitant]
     Dates: start: 20060101
  3. SHORANT [Suspect]
     Indication: TYPE 2 DIABETES MELLITUS
     Route: 058
     Dates: start: 20070101

REACTIONS (14)
  - SENILE DEMENTIA [None]
  - DYSURIA [None]
  - DELIRIUM [None]
  - RENAL FAILURE [None]
  - GAIT DISTURBANCE [None]
  - BLOOD GLUCOSE FLUCTUATION [None]
  - AMNESIA [None]
  - CEREBROVASCULAR ACCIDENT [None]
  - WEIGHT INCREASED [None]
  - DISORIENTATION [None]
  - URINARY TRACT INFECTION [None]
  - HYPOTHYROIDISM [None]
  - BLOOD PRESSURE ABNORMAL [None]
  - BLOOD URIC ACID INCREASED [None]
